FAERS Safety Report 10459890 (Version 1)
Quarter: 2014Q3

REPORT INFORMATION
  Report Type: Report from Study
  Country: BR (occurrence: BR)
  Receive Date: 20140917
  Receipt Date: 20140917
  Transmission Date: 20150326
  Serious: Yes (Death)
  Sender: FDA-Public Use
  Company Number: PHHY2014BR120490

PATIENT
  Sex: Female
  Weight: 49 kg

DRUGS (11)
  1. INSULIN NOVONORDISK INSULATARD HM [Concomitant]
     Indication: DIABETES MELLITUS
     Dosage: 100 U/ML, UNK
  2. CITALOPRAM [Concomitant]
     Active Substance: CITALOPRAM HYDROBROMIDE
     Indication: AGITATION
     Dosage: 30 MG, UNK
  3. PRESSAC [Concomitant]
     Indication: BLOOD PRESSURE ABNORMAL
     Dosage: 2.5 MG, UNK
  4. DIAMICRON [Concomitant]
     Active Substance: GLICLAZIDE
     Indication: DIABETES MELLITUS
     Dosage: 30 MG, UNK
  5. DEPURA [Concomitant]
     Active Substance: CHOLECALCIFEROL
     Indication: OSTEOPOROSIS
     Dosage: 20 ML, QD (5 DROPS BEFORE LUNCH)
  6. RAZOPRIL [Concomitant]
     Indication: BLOOD PRESSURE ABNORMAL
     Dosage: 20 MG, UNK
  7. MODURETIC 5-50 [Concomitant]
     Active Substance: AMILORIDE HYDROCHLORIDE\HYDROCHLOROTHIAZIDE
     Indication: CARDIAC DISORDER
     Dosage: 25/12.5 MG UNK
  8. SINVASTACOR [Concomitant]
     Active Substance: SIMVASTATIN
     Indication: CARDIAC DISORDER
     Dosage: 10 MG, UNK
  9. EXELON PATCH [Suspect]
     Active Substance: RIVASTIGMINE
     Indication: DEMENTIA ALZHEIMER^S TYPE
     Dosage: 13.3 MG, DAILY (15 CM2)
     Route: 062
  10. AAS [Concomitant]
     Active Substance: ASPIRIN
     Indication: CARDIAC DISORDER
     Dosage: 100 MG, UNK
  11. RANITIDINE [Concomitant]
     Active Substance: RANITIDINE\RANITIDINE HYDROCHLORIDE
     Indication: OSTEOPOROSIS
     Dosage: 300 MG, UNK

REACTIONS (6)
  - Malnutrition [Unknown]
  - Hypophagia [Unknown]
  - Renal impairment [Unknown]
  - Hypertension [Unknown]
  - Anaemia [Unknown]
  - Heart disease congenital [Fatal]
